FAERS Safety Report 18054066 (Version 2)
Quarter: 2022Q4

REPORT INFORMATION
  Report Type: Other
  Country: JP (occurrence: JP)
  Receive Date: 20200722
  Receipt Date: 20221216
  Transmission Date: 20230113
  Serious: Yes (Other)
  Sender: FDA-Public Use
  Company Number: JP-CHUGAI-A2020034295ROCHE

PATIENT
  Age: 5 Year
  Sex: Male
  Weight: 15 kg

DRUGS (5)
  1. EMICIZUMAB [Suspect]
     Active Substance: EMICIZUMAB
     Indication: Haemophilia A with anti factor VIII
     Route: 058
     Dates: start: 20190115, end: 20190204
  2. EMICIZUMAB [Suspect]
     Active Substance: EMICIZUMAB
     Route: 058
     Dates: start: 20190207, end: 20200316
  3. EMICIZUMAB [Suspect]
     Active Substance: EMICIZUMAB
     Route: 058
  4. ELOCTATE [Concomitant]
     Active Substance: EFMOROCTOCOG ALFA
     Indication: Haemophilia A with anti factor VIII
     Dosage: 1000 INTERNATIONAL UNIT, ONCE/3WEEKS
     Route: 042
     Dates: start: 20190115, end: 20190211
  5. ELOCTATE [Concomitant]
     Active Substance: EFMOROCTOCOG ALFA
     Dosage: 2000 INTERNATIONAL UNIT, ONCE/2WEEKS
     Route: 042
     Dates: start: 20190212, end: 20200316

REACTIONS (1)
  - Hip arthroplasty [Not Recovered/Not Resolved]
